FAERS Safety Report 7760133-9 (Version None)
Quarter: 2011Q3

REPORT INFORMATION
  Report Type: 
  Country: None (occurrence: None)
  Receive Date: 20110919
  Receipt Date: 20110914
  Transmission Date: 20111222
  Serious: Yes (Life-Threatening, Other)
  Sender: FDA-Public Use
  Company Number: RS-UCBSA-037000

PATIENT
  Sex: Male
  Weight: 95 kg

DRUGS (5)
  1. FOLIC ACID [Concomitant]
     Indication: CROHN'S DISEASE
     Route: 048
     Dates: start: 20030617
  2. XYLOL [Concomitant]
     Indication: NEUROSIS
     Route: 048
     Dates: start: 20030617
  3. SULFASALAZINE [Concomitant]
     Indication: CROHN'S DISEASE
     Route: 048
     Dates: start: 20030122
  4. AZATHIOPRINE [Concomitant]
     Indication: CROHN'S DISEASE
     Route: 048
     Dates: start: 20030617
  5. CERTOLIZUMAB PEGOL [Suspect]
     Indication: CROHN'S DISEASE
     Dosage: CDP-032 STUDY- 400 MG
     Route: 058
     Dates: start: 20040921, end: 20110616

REACTIONS (1)
  - METASTATIC MALIGNANT MELANOMA [None]
